FAERS Safety Report 5746934-7 (Version None)
Quarter: 2008Q2

REPORT INFORMATION
  Report Type: 
  Country: None (occurrence: None)
  Receive Date: 20080520
  Receipt Date: 20080520
  Transmission Date: 20081010
  Serious: No
  Sender: FDA-Public Use
  Company Number: None

PATIENT
  Age: 24 Year
  Sex: Female
  Weight: 49.8957 kg

DRUGS (1)
  1. DIGOXIN  .125 MCG  DIGITEK [Suspect]
     Indication: HEART DISEASE CONGENITAL
     Dosage: 1 PILL ONCE A DAY PO
     Route: 048
     Dates: start: 20080128, end: 20080516

REACTIONS (2)
  - PALPITATIONS [None]
  - PHARMACEUTICAL PRODUCT COMPLAINT [None]
